FAERS Safety Report 8843654 (Version 1)
Quarter: 2012Q4

REPORT INFORMATION
  Report Type: 
  Country: FI (occurrence: FI)
  Receive Date: 20121016
  Receipt Date: 20121016
  Transmission Date: 20130627
  Serious: Yes (Hospitalization)
  Sender: FDA-Public Use
  Company Number: FI-ROCHE-1143964

PATIENT

DRUGS (4)
  1. MABTHERA [Suspect]
     Indication: RHEUMATOID ARTHRITIS
     Route: 042
     Dates: start: 200901
  2. MABTHERA [Suspect]
     Route: 042
     Dates: start: 200908
  3. INSULIN [Concomitant]
     Indication: DIABETES MELLITUS
  4. MAREVAN [Concomitant]
     Indication: PRODUCT USED FOR UNKNOWN INDICATION

REACTIONS (3)
  - Lung disorder [Unknown]
  - Sepsis [Unknown]
  - Pyrexia [Unknown]
